FAERS Safety Report 25926182 (Version 1)
Quarter: 2025Q4

REPORT INFORMATION
  Report Type: Spontaneous
  Country: US (occurrence: None)
  Receive Date: 20251014
  Receipt Date: 20251014
  Transmission Date: 20260117
  Serious: Yes (Hospitalization)
  Sender: FDA-CTU
  Company Number: None

PATIENT
  Sex: Male

DRUGS (1)
  1. NYVEPRIA [Suspect]
     Active Substance: PEGFILGRASTIM-APGF
     Indication: Acute kidney injury
     Dosage: 6 MG EVERY 3 WEEKS SUBCUTANEOUS
     Route: 058
     Dates: start: 20250805

REACTIONS (1)
  - Neoplasm malignant [None]
